FAERS Safety Report 26010355 (Version 4)
Quarter: 2025Q4

REPORT INFORMATION
  Report Type: Report from Study
  Country: KR (occurrence: KR)
  Receive Date: 20251107
  Receipt Date: 20251223
  Transmission Date: 20260118
  Serious: Yes (Other)
  Sender: TAKEDA
  Company Number: KR-TAKEDA-2025TUS097696

PATIENT
  Sex: Female
  Weight: 46 kg

DRUGS (10)
  1. FRUQUINTINIB [Suspect]
     Active Substance: FRUQUINTINIB
     Indication: Colorectal cancer metastatic
     Dosage: 5 MILLIGRAM, QD
     Dates: start: 20251013, end: 20251107
  2. FRUQUINTINIB [Suspect]
     Active Substance: FRUQUINTINIB
     Dosage: 4 MILLIGRAM, QD
     Dates: start: 20251113
  3. METOCLOPRAMIDE HYDROCHLORIDE [Concomitant]
     Active Substance: METOCLOPRAMIDE HYDROCHLORIDE
     Indication: Premedication
     Dosage: 10 MILLIGRAM, TID
     Dates: start: 20200910
  4. MAGMIL S [Concomitant]
     Indication: Premedication
     Dosage: 500 MILLIGRAM, TID
     Dates: start: 20241120
  5. TANTUM [Concomitant]
     Active Substance: BENZYDAMINE HYDROCHLORIDE
     Indication: Premedication
     Dosage: 300 MILLILITER, TID
     Dates: start: 20210421
  6. SODIUM BICARBONATE [Concomitant]
     Active Substance: SODIUM BICARBONATE
     Indication: Premedication
     Dosage: 10 GRAM, QD
     Dates: start: 20241120
  7. LOPERAMIDE HYDROCHLORIDE [Concomitant]
     Active Substance: LOPERAMIDE HYDROCHLORIDE
     Indication: Premedication
     Dosage: 4 MILLIGRAM, TID
     Dates: start: 20231109
  8. LEVOTHYROXINE SODIUM [Concomitant]
     Active Substance: LEVOTHYROXINE SODIUM
     Indication: Hypothyroidism
     Dosage: 25 MICROGRAM, QD
     Dates: start: 20230727
  9. COUGH SYRUP [Concomitant]
     Active Substance: DEXTROMETHORPHAN HYDROBROMIDE\GUAIFENESIN
     Indication: Cough
     Dosage: 20 MILLILITER, QD
     Dates: start: 20250515
  10. CODEINE [Concomitant]
     Active Substance: CODEINE
     Indication: Cough
     Dosage: 20 MILLIGRAM, TID
     Dates: start: 20220310

REACTIONS (1)
  - Arrhythmia [Recovering/Resolving]

NARRATIVE: CASE EVENT DATE: 20251017
